FAERS Safety Report 21980599 (Version 1)
Quarter: 2023Q1

REPORT INFORMATION
  Report Type: Report from Study
  Country: US (occurrence: US)
  Receive Date: 20230211
  Receipt Date: 20230211
  Transmission Date: 20230417
  Serious: No
  Sender: FDA-Public Use
  Company Number: US-002147023-NVSC2023US028877

PATIENT
  Age: 5 Year
  Sex: Female

DRUGS (1)
  1. ILARIS [Suspect]
     Active Substance: CANAKINUMAB
     Indication: Still^s disease
     Dosage: 75 MG, Q4W (EVERY 4 WEEKS)
     Route: 058
     Dates: start: 20221210

REACTIONS (1)
  - Illness [Unknown]

NARRATIVE: CASE EVENT DATE: 20230204
